FAERS Safety Report 19189933 (Version 1)
Quarter: 2021Q2

REPORT INFORMATION
  Report Type: Spontaneous
  Country: TW (occurrence: TW)
  Receive Date: 20210428
  Receipt Date: 20210428
  Transmission Date: 20210717
  Serious: Yes (Other)
  Sender: FDA-Public Use
  Company Number: TW-ASTRAZENECA-2021A350841

PATIENT
  Sex: Female

DRUGS (10)
  1. ERIBULIN [Concomitant]
     Active Substance: ERIBULIN
     Dosage: DOSE AND FREQUENCY UNKNOWN
     Route: 065
  2. FASLODEX [Suspect]
     Active Substance: FULVESTRANT
     Dosage: DOSE AND FREQUENCY UNKNOWN
     Route: 030
  3. ENDOXAN [Concomitant]
     Active Substance: CYCLOPHOSPHAMIDE
     Dosage: DOSE AND FREQUENCY UNKNOWN
     Route: 065
  4. RIBOCICLIB. [Suspect]
     Active Substance: RIBOCICLIB
     Dosage: DOSE AND FREQUENCY UNKNOWN
     Route: 048
     Dates: start: 20180510
  5. TAMOXIFEN [Concomitant]
     Active Substance: TAMOXIFEN
     Dosage: DOSE AND FREQUENCY UNKNOWN
     Route: 065
     Dates: start: 20180510
  6. UFUR [Concomitant]
     Dosage: DOSE AND FREQUENCY UNKNOWN
     Route: 065
  7. PACLITAXEL. [Concomitant]
     Active Substance: PACLITAXEL
     Dosage: DOSE AND FREQUENCY UNKNOWN
     Route: 065
  8. GEMCITABINE. [Concomitant]
     Active Substance: GEMCITABINE
     Dosage: DOSE AND FREQUENCY UNKNOWN
     Route: 065
  9. LIPODOX [Concomitant]
     Active Substance: DOXORUBICIN HYDROCHLORIDE
     Dosage: DOSE AND FREQUENCY UNKNOWN
     Route: 065
  10. FARLUTAL [Concomitant]
     Active Substance: MEDROXYPROGESTERONE ACETATE
     Dosage: DOSE AND FREQUENCY UNKNOWN
     Route: 065

REACTIONS (5)
  - Weight decreased [Unknown]
  - Fatigue [Unknown]
  - Decreased appetite [Unknown]
  - Disease progression [Unknown]
  - Dyspnoea [Unknown]
